FAERS Safety Report 14352011 (Version 1)
Quarter: 2018Q1

REPORT INFORMATION
  Report Type: Spontaneous
  Country: IL (occurrence: IL)
  Receive Date: 20180104
  Receipt Date: 20180104
  Transmission Date: 20180509
  Serious: Yes (Other)
  Sender: FDA-Public Use
  Company Number: IL-TEVA-2017-IL-842142

PATIENT
  Age: 58 Year
  Sex: Male

DRUGS (10)
  1. CLEXANE [Concomitant]
     Active Substance: ENOXAPARIN SODIUM
  2. DEXAMETHASONE. [Concomitant]
     Active Substance: DEXAMETHASONE
  3. CARDILOC [Concomitant]
     Active Substance: BISOPROLOL FUMARATE
  4. KEPPRA [Concomitant]
     Active Substance: LEVETIRACETAM
  5. APIDRA [Concomitant]
     Active Substance: INSULIN GLULISINE
     Indication: DIABETES MELLITUS
  6. LYRICA [Concomitant]
     Active Substance: PREGABALIN
  7. GASTRO [Concomitant]
  8. STATOR [Concomitant]
  9. ABITREXATE [Suspect]
     Active Substance: METHOTREXATE SODIUM
     Dates: start: 20170830
  10. LANTUS [Concomitant]
     Active Substance: INSULIN GLARGINE
     Indication: DIABETES MELLITUS

REACTIONS (2)
  - Blood creatinine abnormal [Unknown]
  - Renal impairment [Unknown]

NARRATIVE: CASE EVENT DATE: 2017
